FAERS Safety Report 4687744-1 (Version None)
Quarter: 2005Q2

REPORT INFORMATION
  Report Type: 
  Country: None (occurrence: None)
  Receive Date: 20050608
  Receipt Date: 20050608
  Transmission Date: 20051028
  Serious: Yes (Hospitalization)
  Sender: FDA-Public Use
  Company Number: None

PATIENT
  Age: 49 Year
  Sex: Male
  Weight: 70.7611 kg

DRUGS (9)
  1. ALEVE [Suspect]
     Indication: BACK PAIN
     Dosage: PO
  2. ASPIRIN [Suspect]
     Dosage: PO QD
     Route: 048
  3. SIMVASTATIN [Concomitant]
  4. LISINOPRIL [Concomitant]
  5. CLONIDINE [Concomitant]
  6. LASIX [Concomitant]
  7. FELODIPINE [Concomitant]
  8. CALCIUM GLUCONATE [Concomitant]
  9. EPOGEN [Concomitant]

REACTIONS (10)
  - ASTHENIA [None]
  - DIZZINESS POSTURAL [None]
  - FAECES DISCOLOURED [None]
  - GASTRITIS [None]
  - GASTROINTESTINAL HAEMORRHAGE [None]
  - HAEMATEMESIS [None]
  - HAEMATOCHEZIA [None]
  - HIATUS HERNIA [None]
  - MELAENA [None]
  - PEPTIC ULCER [None]
